FAERS Safety Report 4526538-4 (Version None)
Quarter: 2004Q4

REPORT INFORMATION
  Report Type: 
  Country: None (occurrence: None)
  Receive Date: 20041210
  Receipt Date: 20041124
  Transmission Date: 20050328
  Serious: Yes (Death)
  Sender: FDA-Public Use
  Company Number: 2004UW24380

PATIENT
  Age: 19 Year
  Sex: Female

DRUGS (4)
  1. SEROQUEL [Suspect]
     Indication: AFFECTIVE DISORDER
     Dosage: 200 MG HS PO
     Route: 048
     Dates: start: 20041001
  2. RISPERDAL [Concomitant]
  3. CARBATROL [Concomitant]
  4. ZITHROMAX [Concomitant]

REACTIONS (5)
  - BRONCHITIS [None]
  - CIRCULATORY COLLAPSE [None]
  - DIZZINESS [None]
  - MALAISE [None]
  - PULMONARY EMBOLISM [None]
